FAERS Safety Report 12206976 (Version 4)
Quarter: 2016Q2

REPORT INFORMATION
  Report Type: Report from Study
  Country: US (occurrence: US)
  Receive Date: 20160324
  Receipt Date: 20160526
  Transmission Date: 20160815
  Serious: Yes (Hospitalization, Other)
  Sender: FDA-Public Use
  Company Number: US-BAYER-2016-038719

PATIENT
  Age: 39 Year
  Sex: Female
  Weight: 103.4 kg

DRUGS (6)
  1. OPSUMIT [Suspect]
     Active Substance: MACITENTAN
  2. XARELTO [Concomitant]
     Active Substance: RIVAROXABAN
  3. ADEMPAS [Suspect]
     Active Substance: RIOCIGUAT
     Indication: PULMONARY ARTERIAL HYPERTENSION
     Dosage: 2.5 MG, TID
     Route: 048
  4. ADEMPAS [Suspect]
     Active Substance: RIOCIGUAT
     Indication: PULMONARY ARTERIAL HYPERTENSION
     Dosage: UNK
     Dates: start: 20150701
  5. REMODULIN [Concomitant]
     Active Substance: TREPROSTINIL
     Dosage: UNK
  6. ADEMPAS [Suspect]
     Active Substance: RIOCIGUAT
     Indication: PULMONARY ARTERIAL HYPERTENSION
     Dosage: 2.5 MG, TID
     Route: 048

REACTIONS (14)
  - Dyspnoea [Unknown]
  - Interstitial lung disease [Unknown]
  - Heart rate increased [Unknown]
  - Arthralgia [Unknown]
  - Urinary tract infection [Unknown]
  - Pneumonia [Unknown]
  - Palpitations [None]
  - Menstruation delayed [Unknown]
  - Anaemia [Unknown]
  - Asthenia [Unknown]
  - Blood potassium increased [Unknown]
  - Pain in extremity [Unknown]
  - Pneumonitis [Unknown]
  - Pain management [Unknown]

NARRATIVE: CASE EVENT DATE: 201604
